FAERS Safety Report 7327611-8 (Version None)
Quarter: 2011Q1

REPORT INFORMATION
  Report Type: 
  Country: None (occurrence: None)
  Receive Date: 20110303
  Receipt Date: 20110222
  Transmission Date: 20110831
  Serious: No
  Sender: FDA-Public Use
  Company Number: US-BIOGENIDEC-2011BI007313

PATIENT
  Age: 33 Year
  Sex: Female

DRUGS (2)
  1. AVONEX [Suspect]
     Indication: MULTIPLE SCLEROSIS
     Route: 030
     Dates: start: 20060201
  2. AVONEX [Suspect]
     Route: 030
     Dates: start: 20050701, end: 20050901

REACTIONS (6)
  - INJECTION SITE PAIN [None]
  - ARTHRALGIA [None]
  - INJECTION SITE ATROPHY [None]
  - MULTIPLE SCLEROSIS RELAPSE [None]
  - INFLUENZA LIKE ILLNESS [None]
  - OPTIC NEURITIS [None]
